FAERS Safety Report 10053683 (Version 1)
Quarter: 2014Q2

REPORT INFORMATION
  Report Type: Spontaneous
  Country: US (occurrence: US)
  Receive Date: 20140402
  Receipt Date: 20140402
  Transmission Date: 20141212
  Serious: No
  Sender: FDA-Public Use
  Company Number: US-BAXTER-2014BAX014767

PATIENT
  Sex: 0

DRUGS (1)
  1. DOBUTAMINE  HYDROCHLORIDE IN 5% DEXTROSE INJECTION [Suspect]
     Indication: PRODUCT USED FOR UNKNOWN INDICATION
     Route: 042

REACTIONS (2)
  - Product label confusion [Unknown]
  - Intercepted drug administration error [Recovered/Resolved]
